FAERS Safety Report 14988860 (Version 1)
Quarter: 2018Q2

REPORT INFORMATION
  Report Type: Spontaneous
  Country: CH (occurrence: CH)
  Receive Date: 20180608
  Receipt Date: 20180608
  Transmission Date: 20180711
  Serious: Yes (Other)
  Sender: FDA-Public Use
  Company Number: PHHY2018CH011483

PATIENT
  Age: 39 Year
  Sex: Female

DRUGS (3)
  1. DROPERIDOL SINTETICA [Suspect]
     Active Substance: DROPERIDOL
     Indication: PRODUCT USED FOR UNKNOWN INDICATION
     Dosage: 1 MG, UNK
     Route: 040
     Dates: start: 20180402, end: 20180402
  2. ZOFRAN [Suspect]
     Active Substance: ONDANSETRON HYDROCHLORIDE
     Indication: PRODUCT USED FOR UNKNOWN INDICATION
     Dosage: 4 MG, UNK
     Route: 040
     Dates: start: 20180402, end: 20180402
  3. PASPERTIN (METOCLOPRAMIDE\POLIDOCANOL) [Suspect]
     Active Substance: METOCLOPRAMIDE\POLIDOCANOL
     Indication: PRODUCT USED FOR UNKNOWN INDICATION
     Dosage: 10 MG, UNK
     Route: 040
     Dates: start: 20180402, end: 20180402

REACTIONS (21)
  - Traumatic delivery [None]
  - Anxiety [None]
  - Vomiting [None]
  - Tinnitus [None]
  - Sensory disturbance [None]
  - Maternal exposure during pregnancy [None]
  - Depressed mood [None]
  - Sensory loss [None]
  - Language disorder [None]
  - Agitation [None]
  - Dissociative disorder [Recovered/Resolved]
  - Tongue biting [None]
  - Vaginal laceration [None]
  - Akathisia [Recovered/Resolved]
  - Altered state of consciousness [None]
  - Confusional state [None]
  - Malaise [None]
  - Tremor [None]
  - Suicidal ideation [None]
  - Discomfort [None]
  - Dyskinesia [None]

NARRATIVE: CASE EVENT DATE: 20180402
